FAERS Safety Report 25188507 (Version 1)
Quarter: 2025Q2

REPORT INFORMATION
  Report Type: Spontaneous
  Country: US (occurrence: US)
  Receive Date: 20250411
  Receipt Date: 20250411
  Transmission Date: 20250717
  Serious: Yes (Other)
  Sender: SANOFI AVENTIS
  Company Number: US-SA-2025SA011789

PATIENT
  Age: 77 Year
  Sex: Female
  Weight: 75.74 kg

DRUGS (1)
  1. DUPIXENT [Suspect]
     Active Substance: DUPILUMAB
     Indication: Sinus polyp
     Dosage: UNK, QOW
     Route: 058

REACTIONS (1)
  - Cardiac disorder [Unknown]
